FAERS Safety Report 14138735 (Version 1)
Quarter: 2017Q4

REPORT INFORMATION
  Report Type: Spontaneous
  Country: PT (occurrence: PT)
  Receive Date: 20171027
  Receipt Date: 20171027
  Transmission Date: 20180321
  Serious: Yes (Hospitalization, Disabling, Other)
  Sender: FDA-Public Use
  Company Number: US-ASTRAZENECA-2017SF09679

PATIENT
  Age: 12 Month
  Sex: Male

DRUGS (1)
  1. SYNAGIS [Suspect]
     Active Substance: PALIVIZUMAB
     Indication: LUNG DISORDER
     Dosage: MONTHLY
     Route: 030
     Dates: start: 20161118, end: 201703

REACTIONS (5)
  - Varicella [Recovering/Resolving]
  - Epilepsy [Recovered/Resolved]
  - Brain injury [Not Recovered/Not Resolved]
  - Brain hypoxia [Recovered/Resolved]
  - Lung infection [Recovered/Resolved]

NARRATIVE: CASE EVENT DATE: 201706
